FAERS Safety Report 10212201 (Version 4)
Quarter: 2015Q2

REPORT INFORMATION
  Report Type: Spontaneous
  Country: US (occurrence: US)
  Receive Date: 20140602
  Receipt Date: 20150609
  Transmission Date: 20150821
  Serious: No
  Sender: FDA-Public Use
  Company Number: US-AMGEN-USASP2014029513

PATIENT
  Age: 60 Year
  Sex: Female

DRUGS (2)
  1. ENBREL [Suspect]
     Active Substance: ETANERCEPT
     Indication: PSORIASIS
     Dosage: 50 MG, ONCE WEEKLY
     Route: 065
     Dates: start: 20140328
  2. ENBREL [Suspect]
     Active Substance: ETANERCEPT
     Dosage: UNK
     Route: 065

REACTIONS (10)
  - Injection site extravasation [Recovered/Resolved]
  - Erythema [Recovered/Resolved]
  - Psoriasis [Recovering/Resolving]
  - Injection site reaction [Not Recovered/Not Resolved]
  - Feeling hot [Recovered/Resolved]
  - Pruritus [Recovering/Resolving]
  - Arthropod bite [Recovered/Resolved]
  - Skin induration [Recovered/Resolved]
  - Injection site erythema [Not Recovered/Not Resolved]
  - Swelling [Not Recovered/Not Resolved]

NARRATIVE: CASE EVENT DATE: 20140404
